FAERS Safety Report 8237380-5 (Version None)
Quarter: 2012Q1

REPORT INFORMATION
  Report Type: 
  Country: None (occurrence: None)
  Receive Date: 20120327
  Receipt Date: 20120319
  Transmission Date: 20120608
  Serious: Yes (Hospitalization)
  Sender: FDA-Public Use
  Company Number: US-BAYER-2012-001211

PATIENT
  Age: 38 Year
  Sex: Female
  Weight: 88.889 kg

DRUGS (6)
  1. YAZ [Suspect]
     Indication: CONTRACEPTION
     Dosage: UNK
     Dates: start: 20090601, end: 20100202
  2. ULTRAM [Concomitant]
     Indication: MIGRAINE
     Dosage: UNK
  3. NAPROXEN (ALEVE) [Concomitant]
     Dosage: UNK
  4. IBUPROFEN [Concomitant]
     Dosage: 1000 MG, UNK
  5. IMITREX [Concomitant]
     Indication: MIGRAINE
     Dosage: UNK
  6. TYLENOL [Concomitant]

REACTIONS (6)
  - PULMONARY EMBOLISM [None]
  - NERVOUSNESS [None]
  - DEPRESSION [None]
  - EMOTIONAL DISTRESS [None]
  - FEAR OF DEATH [None]
  - CHEST PAIN [None]
